FAERS Safety Report 4357245-9 (Version None)
Quarter: 2004Q2

REPORT INFORMATION
  Report Type: 
  Country: None (occurrence: None)
  Receive Date: 20040512
  Receipt Date: 20040512
  Transmission Date: 20050107
  Serious: No
  Sender: FDA-Public Use
  Company Number: None

PATIENT
  Age: 45 Year
  Sex: Female

DRUGS (2)
  1. MOBIC [Suspect]
     Indication: PAIN MANAGEMENT
     Dosage: 7.5 MG QD PO
     Route: 048
     Dates: start: 20040430
  2. SEPTRA [Concomitant]

REACTIONS (4)
  - DRUG HYPERSENSITIVITY [None]
  - MYALGIA [None]
  - PYREXIA [None]
  - RASH [None]
